FAERS Safety Report 24151071 (Version 1)
Quarter: 2024Q3

REPORT INFORMATION
  Report Type: Spontaneous
  Country: FR (occurrence: FR)
  Receive Date: 20240730
  Receipt Date: 20240730
  Transmission Date: 20241016
  Serious: Yes (Hospitalization)
  Sender: RANBAXY
  Company Number: FR-AFSSAPS-NY2024000518

PATIENT
  Age: 12 Year
  Sex: Female
  Weight: 40 kg

DRUGS (3)
  1. RISPERIDONE [Suspect]
     Active Substance: RISPERIDONE
     Indication: Autism spectrum disorder
     Dosage: 3 MILLIGRAM, IN TOTAL
     Route: 048
     Dates: start: 20240401, end: 20240401
  2. CYAMEMAZINE [Suspect]
     Active Substance: CYAMEMAZINE
     Indication: Autism spectrum disorder
     Dosage: 100 MILLIGRAM, IN TOTAL
     Route: 048
     Dates: start: 20240401, end: 20240401
  3. CYAMEMAZINE [Suspect]
     Active Substance: CYAMEMAZINE
     Dosage: 1200 MILLIGRAM, UNK
     Route: 048
     Dates: start: 20240401, end: 20240401

REACTIONS (2)
  - Accidental exposure to product by child [Recovered/Resolved]
  - Somnolence [Recovered/Resolved]

NARRATIVE: CASE EVENT DATE: 20240401
